FAERS Safety Report 15894840 (Version 1)
Quarter: 2019Q1

REPORT INFORMATION
  Report Type: Spontaneous
  Country: US (occurrence: US)
  Receive Date: 20190131
  Receipt Date: 20190131
  Transmission Date: 20190417
  Serious: Yes (Hospitalization)
  Sender: FDA-Public Use
  Company Number: None

PATIENT
  Age: 43 Year
  Sex: Male

DRUGS (2)
  1. ADIPEX-P [Concomitant]
     Active Substance: PHENTERMINE HYDROCHLORIDE
  2. ADIPEX-P [Suspect]
     Active Substance: PHENTERMINE HYDROCHLORIDE

REACTIONS (2)
  - Cardiac failure acute [None]
  - Cardiac failure congestive [None]

NARRATIVE: CASE EVENT DATE: 20181115
